FAERS Safety Report 4294718-1 (Version None)
Quarter: 2004Q1

REPORT INFORMATION
  Report Type: 
  Country: None (occurrence: None)
  Receive Date: 20040213
  Receipt Date: 20040122
  Transmission Date: 20041129
  Serious: Yes (Death, Life-Threatening)
  Sender: FDA-Public Use
  Company Number: DE-ROCHE-357109

PATIENT
  Age: 56 Year
  Sex: Female

DRUGS (5)
  1. PEGASYS [Suspect]
     Dosage: TAKEN WEEKLY
     Route: 058
     Dates: start: 20030115, end: 20031115
  2. REBETOL [Suspect]
     Route: 048
     Dates: start: 20030115, end: 20031115
  3. PARACETAMOL [Concomitant]
     Route: 048
     Dates: start: 20030115, end: 20031115
  4. ZOLPIDEM TARTRATE [Concomitant]
     Route: 048
  5. BISOPROLOL FUMARATE [Concomitant]
     Route: 048
     Dates: start: 20030715

REACTIONS (7)
  - ANAEMIA [None]
  - AORTIC DISSECTION [None]
  - COAGULOPATHY [None]
  - MEDIASTINAL HAEMORRHAGE [None]
  - MULTI-ORGAN FAILURE [None]
  - PLATELET DISORDER [None]
  - PROTHROMBIN TIME PROLONGED [None]
